FAERS Safety Report 19905881 (Version 1)
Quarter: 2021Q3

REPORT INFORMATION
  Report Type: Spontaneous
  Country: CA (occurrence: CA)
  Receive Date: 20210930
  Receipt Date: 20210930
  Transmission Date: 20211014
  Serious: Yes (Other)
  Sender: FDA-Public Use
  Company Number: CA-TEVA-2021-CA-1959021

PATIENT
  Age: 64 Year
  Sex: Male

DRUGS (3)
  1. HERBAL CLEANSE [Concomitant]
  2. QUETIAPINE. [Concomitant]
     Active Substance: QUETIAPINE
  3. PAROXETINE. [Suspect]
     Active Substance: PAROXETINE
     Route: 065

REACTIONS (4)
  - Asthenia [Unknown]
  - Headache [Unknown]
  - Blindness transient [Unknown]
  - Nausea [Unknown]
